FAERS Safety Report 15127845 (Version 1)
Quarter: 2018Q3

REPORT INFORMATION
  Report Type: Spontaneous
  Country: US (occurrence: US)
  Receive Date: 20180710
  Receipt Date: 20180710
  Transmission Date: 20181010
  Serious: No
  Sender: FDA-Public Use
  Company Number: PHEH2018US028337

PATIENT
  Age: 59 Year
  Sex: Male
  Weight: 90.72 kg

DRUGS (1)
  1. TASIGNA [Suspect]
     Active Substance: NILOTINIB
     Route: 065
     Dates: start: 20120101

REACTIONS (1)
  - Alopecia [Recovering/Resolving]
